FAERS Safety Report 6738108-8 (Version None)
Quarter: 2010Q2

REPORT INFORMATION
  Report Type: 
  Country: None (occurrence: None)
  Receive Date: 20100520
  Receipt Date: 20100505
  Transmission Date: 20101027
  Serious: Yes (Other)
  Sender: FDA-Public Use
  Company Number: 584937

PATIENT

DRUGS (8)
  1. CARBOPLATIN [Suspect]
     Indication: PINEALOBLASTOMA
     Dosage: 500 MG/M 2 MILLIGRAM (S) / SQ. METER,
     Route: 058
  2. ETOPOSIDE [Suspect]
     Indication: PINEALOBLASTOMA
     Dosage: 250 MG/M2 MILLIGRAM(S) /SQ. METER.
     Route: 058
  3. CYCLOPHOSPHAMIDE [Suspect]
     Indication: PINEALOBLASTOMA
  4. THIOTEPA [Suspect]
     Indication: PINEALOBLASTOMA
     Dosage: 300 MG/M 2 MILLIGRAM (S) / SQ. METER,
  5. ACYCLOVIR SODIUM [Concomitant]
  6. FLUCONAZOLE [Concomitant]
  7. PENTAMIDINE ISETHIONATE [Concomitant]
  8. (GRANULOCYTE COLONY STIMULATING FACTOR) [Concomitant]

REACTIONS (7)
  - HAEMATOTOXICITY [None]
  - MUCOSAL INFLAMMATION [None]
  - NEUTROPENIA [None]
  - PANCREATITIS [None]
  - PYREXIA [None]
  - SEPSIS [None]
  - VARICELLA [None]
